FAERS Safety Report 9336937 (Version 2)
Quarter: 2013Q2

REPORT INFORMATION
  Report Type: Spontaneous
  Country: DE (occurrence: DE)
  Receive Date: 20130607
  Receipt Date: 20130619
  Transmission Date: 20140414
  Serious: Yes (Death)
  Sender: FDA-Public Use
  Company Number: DE-BRISTOL-MYERS SQUIBB COMPANY-18786277

PATIENT
  Age: 93 Year
  Sex: Female

DRUGS (1)
  1. LITALIR CAPS [Suspect]
     Dosage: THREAPY CONTINUING FROM LAST YEAR.

REACTIONS (2)
  - Death [Fatal]
  - Dysphagia [Unknown]
